FAERS Safety Report 4848044-X (Version None)
Quarter: 2005Q4

REPORT INFORMATION
  Report Type: 
  Country: None (occurrence: None)
  Receive Date: 20051206
  Receipt Date: 20051115
  Transmission Date: 20060501
  Serious: No
  Sender: FDA-Public Use
  Company Number: JP_051007991

PATIENT
  Age: 60 Year
  Sex: Male
  Weight: 85 kg

DRUGS (4)
  1. GEMZA                       (GEMCITABINE HYDROCHLORIDE) [Suspect]
     Indication: PANCREATIC CARCINOMA STAGE IV
     Dosage: 1300 MG, OTHER, INTRAVENOUS
     Route: 042
     Dates: start: 20050907
  2. DAONI                               (GLIBENCLAMIDE) [Concomitant]
  3. ACTOS [Concomitant]
  4. LIPOZART                   (SIMVASTATIN) [Concomitant]

REACTIONS (11)
  - BLOOD CREATINE PHOSPHOKINASE ABNORMAL [None]
  - BLOOD LACTATE DEHYDROGENASE INCREASED [None]
  - BLOOD POTASSIUM INCREASED [None]
  - BLOOD UREA INCREASED [None]
  - C-REACTIVE PROTEIN INCREASED [None]
  - CELL DEATH [None]
  - CONDITION AGGRAVATED [None]
  - HAEMOLYSIS [None]
  - INFLAMMATION [None]
  - PYREXIA [None]
  - TUMOUR LYSIS SYNDROME [None]
